APPROVED DRUG PRODUCT: POTASSIUM CHLORIDE
Active Ingredient: POTASSIUM CHLORIDE
Strength: 8MEQ
Dosage Form/Route: TABLET, EXTENDED RELEASE;ORAL
Application: A204662 | Product #001 | TE Code: AB2
Applicant: PHARMOBEDIENT CONSULTING LLC
Approved: Aug 21, 2014 | RLD: No | RS: No | Type: RX